FAERS Safety Report 4494407-4 (Version None)
Quarter: 2004Q4

REPORT INFORMATION
  Report Type: 
  Country: None (occurrence: None)
  Receive Date: 20041102
  Receipt Date: 20041014
  Transmission Date: 20050328
  Serious: Yes (Death, Life-Threatening, Hospitalization)
  Sender: FDA-Public Use
  Company Number: JP_031102168

PATIENT
  Age: 65 Year
  Sex: Male
  Weight: 48 kg

DRUGS (4)
  1. GEMZAR [Suspect]
     Indication: PANCREATIC CARCINOMA
     Dosage: 1000 MG/M2 OTHER
     Dates: start: 20020702, end: 20020909
  2. BERIZYM [Concomitant]
  3. TOUGHMAC E [Concomitant]
  4. GASMOTIN (MOSAPRIDE CITRATE) [Concomitant]

REACTIONS (16)
  - BLOOD LACTATE DEHYDROGENASE INCREASED [None]
  - CHOLANGITIS [None]
  - COUGH [None]
  - CREPITATIONS [None]
  - DYSPNOEA [None]
  - HEART RATE INCREASED [None]
  - HYPOXIA [None]
  - INTERSTITIAL LUNG DISEASE [None]
  - LABORATORY TEST ABNORMAL [None]
  - MALAISE [None]
  - MALIGNANT NEOPLASM PROGRESSION [None]
  - MONOCYTE COUNT INCREASED [None]
  - NEUTROPENIA [None]
  - PANCREATIC CARCINOMA [None]
  - PYREXIA [None]
  - RESPIRATORY FAILURE [None]
